FAERS Safety Report 9113309 (Version 6)
Quarter: 2014Q1

REPORT INFORMATION
  Report Type: Spontaneous
  Country: US (occurrence: US)
  Receive Date: 20130211
  Receipt Date: 20140204
  Transmission Date: 20141002
  Serious: No
  Sender: FDA-Public Use
  Company Number: US-009507513-1302USA001451

PATIENT
  Age: 56 Year
  Sex: Male

DRUGS (4)
  1. PEGINTRON [Suspect]
     Indication: HEPATITIS C
     Dosage: 0.5 CC ONCE A WEEK
     Route: 058
     Dates: start: 20130118, end: 20131206
  2. REBETOL [Suspect]
     Indication: HEPATITIS C
     Dosage: DOSE REPORTED AS 1 UNITS NOT REPORTED, BID (TWICE A DAY)
     Route: 048
     Dates: start: 20130118, end: 20131206
  3. VICTRELIS [Suspect]
     Indication: HEPATITIS C
     Dosage: 4 CAPSULES, Q8H(EVERY EIGHT HOURS)
     Route: 048
     Dates: start: 20130215, end: 20131206
  4. VICTRELIS [Suspect]
     Dosage: 3 INSTEAD OF 4 CAPSULES AT A TIME
     Route: 048
     Dates: start: 2013

REACTIONS (24)
  - Chromaturia [Unknown]
  - Haemorrhage [Unknown]
  - Dysgeusia [Unknown]
  - Chills [Unknown]
  - Pyrexia [Unknown]
  - Myalgia [Unknown]
  - Decreased appetite [Unknown]
  - Upper respiratory tract infection [Unknown]
  - Pulmonary congestion [Unknown]
  - Epistaxis [Unknown]
  - White blood cell count decreased [Unknown]
  - Leukopenia [Unknown]
  - Rash [Unknown]
  - Dysgeusia [Unknown]
  - Headache [Unknown]
  - Anaemia [Unknown]
  - Haemoglobin decreased [Unknown]
  - Malaise [Unknown]
  - Eating disorder [Unknown]
  - Vomiting [Unknown]
  - Drug dose omission [Unknown]
  - Underdose [Unknown]
  - Dry skin [Unknown]
  - Dysgeusia [Recovering/Resolving]
